FAERS Safety Report 18432804 (Version 1)
Quarter: 2020Q4

REPORT INFORMATION
  Report Type: Spontaneous
  Country: US (occurrence: US)
  Receive Date: 20201027
  Receipt Date: 20201027
  Transmission Date: 20210114
  Serious: No
  Sender: FDA-Public Use
  Company Number: US-AMGEN-USASP2020171950

PATIENT

DRUGS (22)
  1. LEVOXYL [Concomitant]
     Active Substance: LEVOTHYROXINE SODIUM
     Dosage: 137 MILLIGRAM, QD
  2. VELPHORO [Concomitant]
     Active Substance: SUCROFERRIC OXYHYDROXIDE
     Dosage: 500 MILLIGRAM, QD
  3. ARANESP [Suspect]
     Active Substance: DARBEPOETIN ALFA
     Indication: PRODUCT USED FOR UNKNOWN INDICATION
     Dosage: 400 MICROGRAM, QWK
     Route: 065
  4. RENA-VITE [Concomitant]
     Active Substance: ASCORBIC ACID\BIOTIN\CALCIUM PANTOTHENATE\CYANOCOBALAMIN\FOLIC ACID\NIACINAMIDE\PYRIDOXINE HYDROCHLORIDE\RIBOFLAVIN\THIAMINE MONONITRATE
  5. OMEPRAZOL [OMEPRAZOLE] [Concomitant]
     Active Substance: OMEPRAZOLE
  6. AREDS [Concomitant]
     Active Substance: MINERALS\VITAMINS
     Dosage: 2 GELCAPS, AT BREAKFAST
  7. FOLIC ACID. [Concomitant]
     Active Substance: FOLIC ACID
  8. MIRALAX [Concomitant]
     Active Substance: POLYETHYLENE GLYCOL 3350
  9. LIPITOR [Concomitant]
     Active Substance: ATORVASTATIN CALCIUM
  10. TRAMADOL. [Concomitant]
     Active Substance: TRAMADOL
  11. VITAMIN B COMPLEX [Concomitant]
     Active Substance: CYANOCOBALAMIN\DEXPANTHENOL\NIACINAMIDE\PYRIDOXINE HYDROCHLORIDE\RIBOFLAVIN 5^-PHOSPHATE SODIUM\THIAMINE HYDROCHLORIDE\VITAMIN B COMPLEX
  12. XANAX [Concomitant]
     Active Substance: ALPRAZOLAM
  13. VENOFER [Concomitant]
     Active Substance: IRON SUCROSE
  14. YUPELRI [Concomitant]
     Active Substance: REVEFENACIN
  15. LYRICA [Suspect]
     Active Substance: PREGABALIN
     Indication: DIABETIC NEUROPATHY
     Dosage: 20 MILLIGRAM, QD
     Route: 065
     Dates: start: 20200919, end: 20200927
  16. NOVOLOG [Concomitant]
     Active Substance: INSULIN ASPART
     Dosage: 9 UNITS BREAKFAST / 10 UNITS, LUNCH AND DINNER
  17. ZYRTEC [Concomitant]
     Active Substance: CETIRIZINE HYDROCHLORIDE
  18. ALIGN [Concomitant]
     Active Substance: BIFIDOBACTERIUM LONGUM SUBSP. INFANTIS
  19. SENOKOT [Concomitant]
     Active Substance: SENNOSIDES
  20. MIRTAZAPINE. [Concomitant]
     Active Substance: MIRTAZAPINE
  21. LANTUS [Concomitant]
     Active Substance: INSULIN GLARGINE
  22. BUDESONIDE. [Concomitant]
     Active Substance: BUDESONIDE

REACTIONS (3)
  - Asthenia [Recovered/Resolved]
  - Dysarthria [Recovered/Resolved]
  - Somnolence [Recovered/Resolved]

NARRATIVE: CASE EVENT DATE: 20200923
